FAERS Safety Report 10243820 (Version 1)
Quarter: 2014Q1

REPORT INFORMATION
  Report Type: Spontaneous
  Country: US (occurrence: None)
  Receive Date: 20140306
  Receipt Date: 20140306
  Transmission Date: 20141002
  Serious: Yes (Hospitalization)
  Sender: FDA-Public Use
  Company Number: 163-21880-13113999

PATIENT
  Age: 87 Year
  Sex: Male

DRUGS (11)
  1. REVLIMID (LENALIDOMIDE) (CAPSULES) [Suspect]
     Indication: PLASMA CELL MYELOMA
     Dosage: 21-JUN-2013 - TEMPORARILY INTERRUPTED?20 MG, 21 IN 21 D, PO
     Route: 048
     Dates: start: 20130621
  2. PANTOPRAZOLE SODIUM (PANTOPRAZOLE SODIUM) (UNKNOWN) [Concomitant]
  3. AMLODIPINE BESYLATE (AMLODIPINE BESILATE) (UNKNOWN) [Concomitant]
  4. LACTULOSE (LACTULOSE) (UNKNOWN) [Concomitant]
  5. FUROSEMIDE (FUROSEMIDE) (TABLETS) [Concomitant]
  6. LIPITOR (ATORVASTATIN) (TABLETS) [Concomitant]
  7. HYDRALAZINE HCL (HYDRALAZINE HYDROCHLORIDE) (UNKNOWN) [Concomitant]
  8. ASPIRIN (TABLETS) [Concomitant]
  9. ISOSORBIDE DINITRATE (ISOSORBIDE DINITRATE) (UNKNOWN) [Concomitant]
  10. BYSTOLIC (NEBIVOLOL HYDROCHLORIDE) (TABLETS) [Concomitant]
  11. ALLOPURINOL SODIUM (ALLOPURINOL SODIUM) (UNKNOWN) [Concomitant]

REACTIONS (1)
  - Cellulitis [None]
